FAERS Safety Report 5470181-X (Version None)
Quarter: 2007Q3

REPORT INFORMATION
  Report Type: 
  Country: None (occurrence: None)
  Receive Date: 20070927
  Receipt Date: 20070912
  Transmission Date: 20080115
  Serious: Yes (Death)
  Sender: FDA-Public Use
  Company Number: DK-GENENTECH-248232

PATIENT
  Sex: Male

DRUGS (15)
  1. BEVACIZUMAB [Suspect]
     Indication: GASTRIC CANCER
     Dosage: 450 MG, Q2W
     Route: 042
     Dates: start: 20070613
  2. ERLOTINIB [Suspect]
     Indication: GASTRIC CANCER
     Dosage: 150 MG, QD
     Route: 048
     Dates: start: 20070613
  3. DURAGESIC-100 [Suspect]
     Indication: PAIN
     Dosage: 125 A?G, QD
     Dates: start: 20070801
  4. DURAGESIC-100 [Suspect]
     Dosage: 100 A?G, QD
     Dates: start: 20070613, end: 20070801
  5. DURAGESIC-100 [Suspect]
     Dosage: 75 A?G, QD
     Dates: start: 20070607, end: 20070613
  6. DURAGESIC-100 [Suspect]
     Dosage: 50 A?G, QD
     Dates: end: 20070607
  7. ACETAMINOPHEN [Suspect]
     Indication: PAIN
     Dosage: 4000 MG, QD
     Dates: start: 20070808
  8. ACETAMINOPHEN [Suspect]
     Dosage: 1000 MG, PRN
     Route: 048
     Dates: start: 20070808, end: 20070808
  9. MORPHINE [Suspect]
     Indication: PAIN
     Dosage: 30 MG, PRN
     Route: 048
  10. IMODIUM [Suspect]
     Indication: DIARRHOEA
     Dosage: 1 MG, PRN
     Route: 048
     Dates: start: 20070627
  11. PREDNISOLONE [Suspect]
     Indication: NAUSEA
     Dosage: 25 MG, QD
     Route: 048
     Dates: start: 20070710
  12. SUPPLEMENT NOS [Suspect]
     Indication: WEIGHT DECREASED
     Route: 048
     Dates: start: 20070627
  13. GABAPENTIN [Suspect]
     Indication: PAIN
     Dosage: 900 MG, QD
     Route: 048
     Dates: start: 20070808, end: 20070813
  14. GABAPENTIN [Suspect]
     Dosage: 1800 MG, QD
     Route: 048
     Dates: end: 20070808
  15. METADON [Suspect]
     Indication: PAIN
     Dosage: 90 MG, QD
     Route: 048

REACTIONS (1)
  - DEATH [None]
